FAERS Safety Report 8993434 (Version 1)
Quarter: 2013Q1

REPORT INFORMATION
  Report Type: Spontaneous
  Country: TH (occurrence: TH)
  Receive Date: 20130102
  Receipt Date: 20130102
  Transmission Date: 20140127
  Serious: Yes (Other)
  Sender: FDA-Public Use
  Company Number: PHHY2012TH121259

PATIENT
  Age: 42 Year
  Sex: Male

DRUGS (4)
  1. ATENOLOL [Suspect]
     Dosage: 50 MG, UNK
  2. ENALAPRIL [Concomitant]
     Dosage: 10 MG, UNK
  3. ENALAPRIL [Concomitant]
     Dosage: 10 MG, UNK
  4. CHLORHEXIDINE [Concomitant]

REACTIONS (10)
  - Pemphigoid [Recovered/Resolved]
  - Mouth ulceration [Recovered/Resolved]
  - Oral disorder [Recovered/Resolved]
  - Gingivitis [Recovered/Resolved]
  - Generalised erythema [Recovered/Resolved]
  - Skin exfoliation [Recovered/Resolved]
  - Blister [Recovered/Resolved]
  - Pain [Recovered/Resolved]
  - Gingival oedema [Recovered/Resolved]
  - Stomatitis [Recovered/Resolved]
